FAERS Safety Report 15698473 (Version 1)
Quarter: 2018Q4

REPORT INFORMATION
  Report Type: Spontaneous
  Country: US (occurrence: US)
  Receive Date: 20181126
  Receipt Date: 20181126
  Transmission Date: 20190205
  Serious: No
  Sender: FDA-Public Use
  Company Number: None

PATIENT
  Age: 52 Year
  Sex: Female

DRUGS (1)
  1. AIMOVIG [Suspect]
     Active Substance: ERENUMAB-AOOE
     Indication: MIGRAINE PROPHYLAXIS
     Dosage: ?          OTHER FREQUENCY:QMN?? EVERY MORNIN;?
     Route: 058
     Dates: start: 20181027

REACTIONS (1)
  - Fatigue [None]

NARRATIVE: CASE EVENT DATE: 20181027
